FAERS Safety Report 21908622 (Version 1)
Quarter: 2023Q1

REPORT INFORMATION
  Report Type: Spontaneous
  Country: US (occurrence: None)
  Receive Date: 20230124
  Receipt Date: 20230124
  Transmission Date: 20230418
  Serious: No
  Sender: FDA-Public Use
  Company Number: None

PATIENT
  Age: 67 Year
  Sex: Male
  Weight: 74.84 kg

DRUGS (1)
  1. DURVALUMAB [Suspect]
     Active Substance: DURVALUMAB
     Indication: Non-small cell lung cancer
     Dates: start: 20220615, end: 20220615

REACTIONS (9)
  - Pruritus [None]
  - Cough [None]
  - Infusion related reaction [None]
  - Dyspnoea [None]
  - Hypertension [None]
  - Heart rate increased [None]
  - Urticaria [None]
  - Wheezing [None]
  - Obstructive airways disorder [None]

NARRATIVE: CASE EVENT DATE: 20210615
